FAERS Safety Report 5279839-9 (Version None)
Quarter: 2007Q1

REPORT INFORMATION
  Report Type: 
  Country: None (occurrence: None)
  Receive Date: 20070327
  Receipt Date: 20070327
  Transmission Date: 20070707
  Serious: Yes (Other)
  Sender: FDA-Public Use
  Company Number: None

PATIENT
  Age: 65 Year
  Sex: Male
  Weight: 124.7392 kg

DRUGS (1)
  1. MURINE FOR EAR WAX REMOVAL SYSTE CARBAMIDE PEROXIDE 6.5% MURINE [Suspect]
     Indication: CERUMEN REMOVAL
     Dosage: 5-10 DROPS INTO EAR  2 TIMES A DAY  OTHER
     Route: 050
     Dates: start: 20070319, end: 20070319

REACTIONS (2)
  - EAR DISCOMFORT [None]
  - EAR PAIN [None]
